FAERS Safety Report 8814034 (Version 1)
Quarter: 2012Q4

REPORT INFORMATION
  Report Type: 
  Country: US (occurrence: US)
  Receive Date: 20120928
  Receipt Date: 20120928
  Transmission Date: 20130627
  Serious: No
  Sender: FDA-Public Use
  Company Number: US-PFIZER INC-2012238015

PATIENT
  Age: 78 Year
  Sex: Female
  Weight: 61.22 kg

DRUGS (7)
  1. LYRICA [Suspect]
     Indication: PAIN IN EXTREMITY
     Dosage: 50mg in morning and 75mg in evening
     Route: 048
     Dates: start: 20120919, end: 201209
  2. LYRICA [Suspect]
     Indication: NEUROPATHY PERIPHERAL
     Dosage: 50 mg, 2x/day
     Route: 048
     Dates: start: 201209
  3. NEURONTIN [Suspect]
     Indication: PAIN IN EXTREMITY
     Dosage: 400 mg daily at night
     Route: 048
     Dates: end: 20120919
  4. NEURONTIN [Suspect]
     Indication: NEUROPATHY PERIPHERAL
  5. DIOVAN HCT [Concomitant]
     Indication: HYPERTENSION
     Dosage: 160/25 mg daily
  6. DETROL LA [Concomitant]
     Indication: HYPERTONIC BLADDER
     Dosage: 4 mg, daily
  7. OMEPRAZOLE [Concomitant]
     Dosage: UNK

REACTIONS (7)
  - Feeling drunk [Unknown]
  - Sedation [Unknown]
  - Back pain [Unknown]
  - Hypoaesthesia [Unknown]
  - Eye disorder [Unknown]
  - Visual impairment [Unknown]
  - Drug intolerance [Unknown]
